FAERS Safety Report 15868389 (Version 1)
Quarter: 2019Q1

REPORT INFORMATION
  Report Type: Spontaneous
  Country: IN (occurrence: IN)
  Receive Date: 20190125
  Receipt Date: 20190125
  Transmission Date: 20190417
  Serious: Yes (Disabling, Other)
  Sender: FDA-Public Use
  Company Number: None

PATIENT
  Age: 62 Year
  Sex: Male
  Weight: 72 kg

DRUGS (1)
  1. XIGDUO XR [Suspect]
     Active Substance: DAPAGLIFLOZIN PROPANEDIOL\METFORMIN HYDROCHLORIDE
     Indication: TYPE 2 DIABETES MELLITUS
     Dosage: ?          QUANTITY:1 TABLET(S);?
     Route: 048
     Dates: start: 20180827, end: 20190120

REACTIONS (8)
  - Blood creatinine increased [None]
  - Back pain [None]
  - Feeling cold [None]
  - Glycosylated haemoglobin increased [None]
  - Weight decreased [None]
  - Arthralgia [None]
  - Pyrexia [None]
  - Somnolence [None]

NARRATIVE: CASE EVENT DATE: 20190105
